FAERS Safety Report 24584128 (Version 1)
Quarter: 2024Q4

REPORT INFORMATION
  Report Type: Report from Study
  Country: MX (occurrence: MX)
  Receive Date: 20241106
  Receipt Date: 20241106
  Transmission Date: 20250114
  Serious: Yes (Death)
  Sender: NOVARTIS
  Company Number: MX-002147023-NVSC2024MX214386

PATIENT
  Sex: Female

DRUGS (1)
  1. EXFORGE HCT [Suspect]
     Active Substance: AMLODIPINE BESYLATE\HYDROCHLOROTHIAZIDE\VALSARTAN
     Indication: Product used for unknown indication
     Dosage: UNK, OTHER
     Route: 065

REACTIONS (1)
  - Death [Fatal]
